FAERS Safety Report 6146871-2 (Version None)
Quarter: 2009Q2

REPORT INFORMATION
  Report Type: 
  Country: None (occurrence: None)
  Receive Date: 20090406
  Receipt Date: 20090406
  Transmission Date: 20091009
  Serious: Yes (Other)
  Sender: FDA-Public Use
  Company Number: None

PATIENT
  Sex: Female
  Weight: 91.36 kg

DRUGS (7)
  1. LISINOPRIL [Suspect]
     Dosage: 2.5 MG TABLET 2.5 MG QD ORAL
     Route: 048
     Dates: start: 20090112, end: 20090205
  2. ASPIRIN [Concomitant]
  3. CALCIUM [Concomitant]
  4. CELEXA [Concomitant]
  5. FISH OIL CAPSULE (OMEGA-3-FATTY ACIDS) [Concomitant]
  6. LIPITOR [Concomitant]
  7. MVI (MULTIVITIMINS) [Concomitant]

REACTIONS (1)
  - COUGH [None]
